FAERS Safety Report 20996511 (Version 1)
Quarter: 2022Q2

REPORT INFORMATION
  Report Type: Spontaneous
  Country: US (occurrence: US)
  Receive Date: 20220623
  Receipt Date: 20220623
  Transmission Date: 20220720
  Serious: No
  Sender: FDA-Public Use
  Company Number: US-BRISTOL-MYERS SQUIBB COMPANY-2022-049227

PATIENT
  Age: 57 Year
  Sex: Male
  Weight: 113.3 kg

DRUGS (3)
  1. REVLIMID [Suspect]
     Active Substance: LENALIDOMIDE
     Indication: Plasma cell myeloma
     Dosage: FREQUENCY: DAILY
  2. DEXAMETHASONE [Concomitant]
     Active Substance: DEXAMETHASONE
  3. DARATUMUMAB [Concomitant]
     Active Substance: DARATUMUMAB

REACTIONS (1)
  - Adverse event [Unknown]
